FAERS Safety Report 5094348-8 (Version None)
Quarter: 2006Q3

REPORT INFORMATION
  Report Type: 
  Country: None (occurrence: None)
  Receive Date: 20060731
  Receipt Date: 20060424
  Transmission Date: 20061208
  Serious: No
  Sender: FDA-Public Use
  Company Number: 2006PV012618

PATIENT
  Age: 45 Year
  Sex: Female

DRUGS (1)
  1. BYETTA [Suspect]
     Indication: DRUG USE FOR UNKNOWN INDICATION
     Dosage: 5 MCG BID SC
     Route: 058
     Dates: start: 20060401, end: 20060424

REACTIONS (1)
  - INJECTION SITE RASH [None]
